FAERS Safety Report 12958532 (Version 2)
Quarter: 2016Q4

REPORT INFORMATION
  Report Type: Report from Study
  Country: US (occurrence: US)
  Receive Date: 20161121
  Receipt Date: 20161229
  Transmission Date: 20170207
  Serious: Yes (Other)
  Sender: FDA-Public Use
  Company Number: US-AMGEN-USASL2016161475

PATIENT
  Age: 74 Year
  Sex: Female
  Weight: 56.23 kg

DRUGS (1)
  1. REPATHA [Suspect]
     Active Substance: EVOLOCUMAB
     Indication: HYPERLIPIDAEMIA
     Dosage: 140 MG, Q2WK
     Route: 058

REACTIONS (4)
  - Paralysis [Recovered/Resolved]
  - Hemiparesis [Unknown]
  - Dyspnoea [Recovered/Resolved]
  - Unevaluable event [Unknown]
